FAERS Safety Report 23508856 (Version 2)
Quarter: 2024Q2

REPORT INFORMATION
  Report Type: Spontaneous
  Country: US (occurrence: US)
  Receive Date: 20240209
  Receipt Date: 20240416
  Transmission Date: 20240716
  Serious: No
  Sender: FDA-Public Use
  Company Number: US-002147023-NVSC2024US029137

PATIENT
  Sex: Female

DRUGS (1)
  1. PROMACTA [Suspect]
     Active Substance: ELTROMBOPAG OLAMINE
     Indication: Thrombocytopenia
     Dosage: 12.5 MG, QD
     Route: 048
     Dates: start: 202112

REACTIONS (6)
  - Pain [Unknown]
  - Acne [Unknown]
  - Dizziness [Unknown]
  - Confusional state [Unknown]
  - Visual impairment [Unknown]
  - Fatigue [Unknown]
